FAERS Safety Report 10579527 (Version 1)
Quarter: 2014Q4

REPORT INFORMATION
  Report Type: Spontaneous
  Country: US (occurrence: US)
  Receive Date: 20141112
  Receipt Date: 20141112
  Transmission Date: 20150529
  Serious: Yes (Other)
  Sender: FDA-Public Use
  Company Number: US-UCBSA-2014017420

PATIENT
  Sex: Female
  Weight: 74.85 kg

DRUGS (4)
  1. VIMPAT [Suspect]
     Active Substance: LACOSAMIDE
     Indication: CONVULSION PROPHYLAXIS
     Dosage: 100 MG, 2X/DAY (BID) (STARTED 5-6 YEARS AGO)
     Route: 048
  2. PRENATAL VITAMINS [Concomitant]
     Active Substance: VITAMINS
     Indication: SUPPLEMENTATION THERAPY
     Dosage: 2 TAB DAILY
     Route: 048
     Dates: start: 201304, end: 201402
  3. OXCARBAZEPINE. [Concomitant]
     Active Substance: OXCARBAZEPINE
     Indication: CONVULSION PROPHYLAXIS
     Dosage: 1000 MG, ONCE DAILY (QD)
     Route: 048
  4. BENADRYL PRB [Concomitant]
     Indication: RASH
     Dosage: 1 TABLET, AS NEEDED (PRN)
     Route: 048
     Dates: start: 2013, end: 2014

REACTIONS (4)
  - Drug ineffective [Unknown]
  - Gestational diabetes [Recovered/Resolved]
  - Pregnancy [Unknown]
  - Polymorphic eruption of pregnancy [Recovered/Resolved]

NARRATIVE: CASE EVENT DATE: 2013
